FAERS Safety Report 9436911 (Version 1)
Quarter: 2013Q3

REPORT INFORMATION
  Report Type: Spontaneous
  Country: US (occurrence: US)
  Receive Date: 20130802
  Receipt Date: 20130802
  Transmission Date: 20140515
  Serious: No
  Sender: FDA-Public Use
  Company Number: US-PFIZER INC-2013224385

PATIENT
  Age: 54 Year
  Sex: Male
  Weight: 58.5 kg

DRUGS (3)
  1. CHANTIX [Suspect]
     Indication: SMOKING CESSATION THERAPY
     Dosage: UNK
     Dates: start: 20130712, end: 201307
  2. PREDNISONE [Concomitant]
     Indication: CHRONIC OBSTRUCTIVE PULMONARY DISEASE
     Dosage: 10 MG, DAILY
  3. HYDROMORPHONE [Concomitant]
     Indication: PAIN IN EXTREMITY
     Dosage: 4 MG, AS NEEDED

REACTIONS (2)
  - Depressed mood [Recovered/Resolved]
  - Sleep disorder [Recovered/Resolved]
